FAERS Safety Report 6977335-1 (Version None)
Quarter: 2010Q3

REPORT INFORMATION
  Report Type: 
  Country: None (occurrence: None)
  Receive Date: 20100910
  Receipt Date: 20100903
  Transmission Date: 20110219
  Serious: Yes (Hospitalization, Other)
  Sender: FDA-Public Use
  Company Number: PHHO2010DE11874

PATIENT
  Sex: Male
  Weight: 79 kg

DRUGS (7)
  1. SANDIMMUNE [Suspect]
     Indication: RENAL TRANSPLANT
     Dosage: 125 MG, BID
     Route: 048
     Dates: start: 20090217
  2. SANDIMMUNE [Suspect]
     Dosage: 100 MG, BID
     Route: 048
  3. MYFORTIC [Suspect]
     Indication: RENAL TRANSPLANT
     Dosage: 720 MG, BID
     Route: 048
     Dates: start: 20090217
  4. NO TREATMENT RECEIVED NOMED [Suspect]
  5. URBASON [Suspect]
     Indication: RENAL TRANSPLANT
     Dosage: 12 MG, QD
     Dates: start: 20090218
  6. TORASEMIDE [Suspect]
     Indication: DIURETIC THERAPY
     Dosage: 10 MG, QD
     Dates: start: 20090406, end: 20090417
  7. TORASEMIDE [Suspect]
     Dosage: 10 MG, QD
     Dates: start: 20090420

REACTIONS (4)
  - BLOOD CREATININE INCREASED [None]
  - HYPOVOLAEMIA [None]
  - IMMUNOSUPPRESSANT DRUG LEVEL INCREASED [None]
  - TRANSPLANT FAILURE [None]
